FAERS Safety Report 4869975-0 (Version None)
Quarter: 2005Q4

REPORT INFORMATION
  Report Type: 
  Country: None (occurrence: None)
  Receive Date: 20051230
  Receipt Date: 20051004
  Transmission Date: 20060501
  Serious: Yes (Hospitalization, Other)
  Sender: FDA-Public Use
  Company Number: US-MERCK-0510USA03868

PATIENT
  Age: 56 Year
  Sex: Male
  Weight: 80 kg

DRUGS (24)
  1. VIOXX [Suspect]
     Indication: ARTHRITIS
     Route: 048
     Dates: start: 20011031, end: 20040930
  2. VIOXX [Suspect]
     Route: 048
     Dates: start: 20011031, end: 20040930
  3. VIOXX [Suspect]
     Indication: ARTHRALGIA
     Route: 048
     Dates: start: 20011031, end: 20040930
  4. VIOXX [Suspect]
     Route: 048
     Dates: start: 20011031, end: 20040930
  5. AGGRENOX [Concomitant]
     Indication: THROMBOSIS PROPHYLAXIS
     Route: 065
  6. ALPHAGAN [Concomitant]
     Indication: GLAUCOMA
     Route: 065
  7. ANUCORT [Concomitant]
     Indication: HAEMORRHOIDS
     Route: 065
  8. ASPIRIN [Concomitant]
     Indication: CEREBROVASCULAR ACCIDENT PROPHYLAXIS
     Route: 065
     Dates: start: 20010503, end: 20010601
  9. ATENOLOL [Concomitant]
     Indication: HYPERTENSION
     Route: 065
     Dates: start: 19991213, end: 20030501
  10. CIALIS [Concomitant]
     Indication: ERECTILE DYSFUNCTION
     Route: 065
  11. CIPRO [Concomitant]
     Indication: BACTERIAL INFECTION
     Route: 065
  12. LORATADINE [Concomitant]
     Route: 065
  13. FLOMAX (MORNIFLUMATE) [Concomitant]
     Indication: BENIGN PROSTATIC HYPERPLASIA
     Route: 065
  14. FOLIC ACID [Concomitant]
     Indication: ANAEMIA
     Route: 065
     Dates: start: 20011001
  15. GLIPIZIDE [Concomitant]
     Indication: DIABETES MELLITUS
     Route: 065
     Dates: start: 20011001
  16. ACETAMINOPHEN AND HYDROCODONE BITARTRATE [Concomitant]
     Indication: PAIN
     Route: 065
  17. KLOR-CON [Concomitant]
     Indication: MINERAL SUPPLEMENTATION
     Route: 065
     Dates: start: 20011001
  18. MEPROZINE [Concomitant]
     Indication: PAIN
     Route: 065
  19. NAPROXEN [Concomitant]
     Indication: ARTHRITIS
     Route: 065
     Dates: start: 19990101
  20. PLAVIX [Concomitant]
     Indication: ANTICOAGULANT THERAPY
     Route: 065
     Dates: start: 20011024
  21. PREDNISONE [Concomitant]
     Route: 065
     Dates: start: 20011024, end: 20020101
  22. PROCARDIA [Concomitant]
     Indication: HYPERTENSION
     Route: 065
     Dates: start: 19991213, end: 20020101
  23. METHOTREXATE [Concomitant]
     Indication: ARTHRITIS
     Route: 065
     Dates: start: 20010801
  24. DOCUSATE CALCIUM [Concomitant]
     Indication: CONSTIPATION
     Route: 065

REACTIONS (15)
  - BACTERIAL INFECTION [None]
  - BENIGN PROSTATIC HYPERPLASIA [None]
  - BLOOD CHOLESTEROL INCREASED [None]
  - CAROTID ARTERY OCCLUSION [None]
  - CATARACT [None]
  - CEREBROVASCULAR ACCIDENT [None]
  - CONJUNCTIVITIS INFECTIVE [None]
  - CONSTIPATION [None]
  - CONVULSION [None]
  - GLAUCOMA [None]
  - HAEMORRHOIDS [None]
  - INFECTION [None]
  - PROSTATE CANCER [None]
  - TRANSIENT ISCHAEMIC ATTACK [None]
  - TREATMENT NONCOMPLIANCE [None]
